FAERS Safety Report 25237119 (Version 1)
Quarter: 2025Q2

REPORT INFORMATION
  Report Type: Spontaneous
  Country: CN (occurrence: CN)
  Receive Date: 20250425
  Receipt Date: 20250425
  Transmission Date: 20250716
  Serious: Yes (Disabling)
  Sender: BEIGENE
  Company Number: CN-BEIGENE-BGN-2025-006219

PATIENT
  Age: 64 Year
  Weight: 67.5 kg

DRUGS (21)
  1. TISLELIZUMAB [Suspect]
     Active Substance: TISLELIZUMAB
     Indication: Oesophageal carcinoma
  2. TISLELIZUMAB [Suspect]
     Active Substance: TISLELIZUMAB
  3. TISLELIZUMAB [Suspect]
     Active Substance: TISLELIZUMAB
     Route: 041
  4. TISLELIZUMAB [Suspect]
     Active Substance: TISLELIZUMAB
     Route: 041
  5. TISLELIZUMAB [Suspect]
     Active Substance: TISLELIZUMAB
  6. TISLELIZUMAB [Suspect]
     Active Substance: TISLELIZUMAB
  7. TISLELIZUMAB [Suspect]
     Active Substance: TISLELIZUMAB
     Route: 041
  8. TISLELIZUMAB [Suspect]
     Active Substance: TISLELIZUMAB
     Route: 041
  9. CARBOPLATIN [Suspect]
     Active Substance: CARBOPLATIN
     Indication: Oesophageal carcinoma
     Route: 041
  10. CARBOPLATIN [Suspect]
     Active Substance: CARBOPLATIN
  11. PACLITAXEL [Suspect]
     Active Substance: PACLITAXEL
     Indication: Oesophageal carcinoma
  12. PACLITAXEL [Suspect]
     Active Substance: PACLITAXEL
     Route: 041
  13. PACLITAXEL [Suspect]
     Active Substance: PACLITAXEL
  14. PACLITAXEL [Suspect]
     Active Substance: PACLITAXEL
     Route: 041
  15. SODIUM CHLORIDE [Concomitant]
     Active Substance: SODIUM CHLORIDE
     Indication: Vehicle solution use
  16. SODIUM CHLORIDE [Concomitant]
     Active Substance: SODIUM CHLORIDE
     Route: 041
  17. SODIUM CHLORIDE [Concomitant]
     Active Substance: SODIUM CHLORIDE
  18. SODIUM CHLORIDE [Concomitant]
     Active Substance: SODIUM CHLORIDE
     Route: 041
  19. DEXTROSE [Concomitant]
     Active Substance: DEXTROSE MONOHYDRATE
     Indication: Vehicle solution use
     Route: 041
  20. DEXTROSE [Concomitant]
     Active Substance: DEXTROSE MONOHYDRATE
  21. INDOMETHACIN [Concomitant]
     Active Substance: INDOMETHACIN

REACTIONS (2)
  - Hepatic function abnormal [Recovering/Resolving]
  - Acute kidney injury [Recovering/Resolving]
